FAERS Safety Report 8403431-8 (Version None)
Quarter: 2012Q2

REPORT INFORMATION
  Report Type: 
  Country: None (occurrence: None)
  Receive Date: 20120601
  Receipt Date: 20120521
  Transmission Date: 20120825
  Serious: Yes (Other)
  Sender: FDA-Public Use
  Company Number: PHHO2012BE007302

PATIENT
  Sex: Female
  Weight: 49.9 kg

DRUGS (7)
  1. AFINITOR [Suspect]
     Indication: NEOPLASM
     Dosage: 2.5 MG, QW
     Route: 048
     Dates: start: 20120507, end: 20120511
  2. LORMETAZEPAM [Concomitant]
     Indication: INSOMNIA
     Dosage: 1 MG, QD
     Route: 048
     Dates: start: 20120504
  3. STEOVIT [Concomitant]
     Indication: OSTEOPOROSIS
     Dosage: 1 DF, QD
     Route: 048
     Dates: start: 20111001
  4. MAGNESIUM SULFATE [Concomitant]
     Indication: HYPOMAGNESAEMIA
     Dosage: 3 G, QD
     Route: 042
     Dates: start: 20120503
  5. ACETAMINOPHEN [Concomitant]
     Indication: PAIN
     Dosage: 16 MG, QD
     Route: 048
     Dates: start: 20111001, end: 20120511
  6. BEZ235 [Suspect]
     Indication: NEOPLASM
     Dosage: 200 MG, BID
     Route: 048
     Dates: start: 20120507, end: 20120511
  7. CITALOPRAM HYDROBROMIDE [Concomitant]
     Indication: DEPRESSION
     Dosage: 10 MG, QD
     Route: 048
     Dates: start: 20021001

REACTIONS (1)
  - MYOCARDIAL INFARCTION [None]
